FAERS Safety Report 22642313 (Version 1)
Quarter: 2023Q2

REPORT INFORMATION
  Report Type: Spontaneous
  Country: US (occurrence: US)
  Receive Date: 20230626
  Receipt Date: 20230626
  Transmission Date: 20230722
  Serious: Yes (Hospitalization)
  Sender: FDA-Public Use
  Company Number: US-009507513-2306USA010923

PATIENT
  Age: 78 Year
  Sex: Female

DRUGS (2)
  1. KEYTRUDA [Suspect]
     Active Substance: PEMBROLIZUMAB
     Indication: Uterine cancer
  2. ZOMETA [Suspect]
     Active Substance: ZOLEDRONIC ACID
     Indication: Uterine cancer

REACTIONS (2)
  - Eye disorder [Not Recovered/Not Resolved]
  - Product use in unapproved indication [Unknown]
